FAERS Safety Report 15349618 (Version 2)
Quarter: 2018Q3

REPORT INFORMATION
  Report Type: Report from Study
  Country: US (occurrence: US)
  Receive Date: 20180904
  Receipt Date: 20180912
  Transmission Date: 20181010
  Serious: Yes (Hospitalization)
  Sender: FDA-Public Use
  Company Number: US-EXELIXIS-CABO-18015644

PATIENT
  Age: 62 Year
  Sex: Male

DRUGS (1)
  1. CABOMETYX [Suspect]
     Active Substance: CABOZANTINIB S-MALATE
     Indication: RENAL CANCER
     Dosage: 60 MG, QD (ON EMPTY STOMACH)
     Dates: start: 20180808, end: 20180819

REACTIONS (9)
  - Amnesia [Unknown]
  - Balance disorder [Unknown]
  - Fatigue [Unknown]
  - Nausea [Unknown]
  - Infection [Unknown]
  - Hypotension [Unknown]
  - Decreased appetite [Unknown]
  - Depressed level of consciousness [Unknown]
  - Dry skin [Unknown]

NARRATIVE: CASE EVENT DATE: 201808
